FAERS Safety Report 12171725 (Version 8)
Quarter: 2016Q2

REPORT INFORMATION
  Report Type: Spontaneous
  Country: US (occurrence: US)
  Receive Date: 20160311
  Receipt Date: 20160609
  Transmission Date: 20160815
  Serious: Yes (Other)
  Sender: FDA-Public Use
  Company Number: US-PFIZER INC-2016143584

PATIENT
  Age: 71 Year
  Sex: Female
  Weight: 86 kg

DRUGS (3)
  1. ALTACE [Suspect]
     Active Substance: RAMIPRIL
     Indication: BLOOD PRESSURE ABNORMAL
     Dosage: UNK, DAILY (3 5MG CAPSULE PER DAY)
  2. HYDROCHLOROTHIAZIDE. [Concomitant]
     Active Substance: HYDROCHLOROTHIAZIDE
     Indication: BLOOD PRESSURE ABNORMAL
     Dosage: 25 MG, 1X/DAY
  3. ALTACE [Suspect]
     Active Substance: RAMIPRIL
     Dosage: UNK, DAILY (4 A DAY)

REACTIONS (3)
  - Cerebrovascular accident [Unknown]
  - Blood pressure increased [Unknown]
  - Musculoskeletal stiffness [Unknown]

NARRATIVE: CASE EVENT DATE: 20151025
